FAERS Safety Report 15882520 (Version 5)
Quarter: 2021Q4

REPORT INFORMATION
  Report Type: Spontaneous
  Country: ES (occurrence: ES)
  Receive Date: 20190129
  Receipt Date: 20211214
  Transmission Date: 20220303
  Serious: Yes (Hospitalization, Other)
  Sender: FDA-Public Use
  Company Number: ES-ALEXION-53157

PATIENT
  Age: 54 Year
  Sex: Male
  Weight: 75 kg

DRUGS (11)
  1. SOLIRIS [Suspect]
     Active Substance: ECULIZUMAB
     Indication: Paroxysmal nocturnal haemoglobinuria
     Dosage: UNK, QW
     Route: 065
     Dates: start: 20090701
  2. SOLIRIS [Suspect]
     Active Substance: ECULIZUMAB
     Dosage: UNK, EVERY 12 TO 14 DAYS
     Route: 065
  3. SOLIRIS [Suspect]
     Active Substance: ECULIZUMAB
     Dosage: UNK, EVERY 16 DAYS
     Route: 065
  4. SOLIRIS [Suspect]
     Active Substance: ECULIZUMAB
     Dosage: UNK, EVERY 12 DAYS
     Route: 065
  5. SOLIRIS [Suspect]
     Active Substance: ECULIZUMAB
     Dosage: UNK, EVERY 12 TO 14 DAYS
     Route: 065
  6. SOLIRIS [Suspect]
     Active Substance: ECULIZUMAB
     Dosage: 600 MG, QW
     Route: 065
  7. SOLIRIS [Suspect]
     Active Substance: ECULIZUMAB
     Dosage: 900 MG, EVERY 14 DAYS
     Route: 065
     Dates: start: 2019
  8. SOLIRIS [Suspect]
     Active Substance: ECULIZUMAB
     Dosage: 900 MG, QW
     Route: 065
  9. SOLIRIS [Suspect]
     Active Substance: ECULIZUMAB
     Dosage: 1200 MG, QW
     Route: 065
  10. CYCLOSPORINE [Suspect]
     Active Substance: CYCLOSPORINE
     Indication: Product used for unknown indication
     Dosage: UNK
     Route: 065
  11. LAPINE T-LYMPHOCYTE IMMUNE GLOBULIN [Concomitant]
     Active Substance: LAPINE T-LYMPHOCYTE IMMUNE GLOBULIN
     Indication: Product used for unknown indication
     Dosage: WEIGHT: 75 KG/DOSE 15 MG/KG/DAY: 1125 MG/DAYX 5 DAYS
     Route: 065
     Dates: start: 20150119, end: 20150123

REACTIONS (35)
  - Bile duct stenosis [Unknown]
  - Post procedural complication [Not Recovered/Not Resolved]
  - Liver disorder [Not Recovered/Not Resolved]
  - Hepatic artery thrombosis [Unknown]
  - Splenic artery thrombosis [Unknown]
  - Cholestasis [Unknown]
  - Haemoglobinuria [Unknown]
  - Intravascular haemolysis [Recovered/Resolved]
  - Pseudomembranous colitis [Unknown]
  - Urinary tract infection pseudomonal [Unknown]
  - Escherichia urinary tract infection [Unknown]
  - Chemical peritonitis [Unknown]
  - Biloma [Unknown]
  - Persistent cloaca [Unknown]
  - Breakthrough haemolysis [Unknown]
  - Bacteraemia [Unknown]
  - Upper gastrointestinal haemorrhage [Unknown]
  - Cutaneous vasculitis [Unknown]
  - Pneumonia fungal [Unknown]
  - Extravascular haemolysis [Recovered/Resolved]
  - Gastrointestinal haemorrhage [Unknown]
  - Cholangitis infective [Unknown]
  - Anaemia [Unknown]
  - Thrombocytopenia [Recovering/Resolving]
  - Bacterial infection [Unknown]
  - Biliary tract disorder [Not Recovered/Not Resolved]
  - Disease complication [Not Recovered/Not Resolved]
  - Drug ineffective [Unknown]
  - Gastrointestinal angiodysplasia [Unknown]
  - Reticulocytosis [Unknown]
  - Hypersplenism [Unknown]
  - Nephropathy toxic [Unknown]
  - Transaminases increased [Unknown]
  - Cholelithiasis [Unknown]
  - Overdose [Unknown]

NARRATIVE: CASE EVENT DATE: 20190101
